FAERS Safety Report 7521442-1 (Version None)
Quarter: 2011Q2

REPORT INFORMATION
  Report Type: 
  Country: None (occurrence: None)
  Receive Date: 20110603
  Receipt Date: 20110112
  Transmission Date: 20111010
  Serious: Yes (Death, Hospitalization)
  Sender: FDA-Public Use
  Company Number: JP-BAYER-201015868BYL

PATIENT
  Age: 33 Year
  Sex: Female
  Weight: 65 kg

DRUGS (35)
  1. FENTANYL [Suspect]
     Dosage: DAILY DOSE 25.2 MG
     Route: 062
     Dates: start: 20090930
  2. TELEMINSOFT [Concomitant]
     Indication: CONSTIPATION
     Dosage: UNK
     Route: 054
     Dates: start: 20080731
  3. PROCHLORPERAZINE [Concomitant]
     Indication: NAUSEA
     Dosage: 5 MG, TID
     Route: 048
     Dates: start: 20080311
  4. VOLTAREN [Concomitant]
     Indication: CANCER PAIN
     Dosage: UNK
     Route: 054
     Dates: start: 20080311
  5. FAMOTIDINE [Concomitant]
     Dosage: 10 MG, QD
     Route: 048
     Dates: start: 20071107
  6. TRIAZOLAM [Concomitant]
     Dosage: 0.25 MG, QD
     Route: 048
     Dates: start: 20080401, end: 20080630
  7. VENCOLL [Concomitant]
     Dosage: 2 DF, TID
     Route: 048
     Dates: start: 20080101
  8. OXYCONTIN [Suspect]
     Indication: CANCER PAIN
     Dosage: 5 MG, BID
     Route: 048
     Dates: start: 20080311, end: 20081220
  9. FENTANYL [Suspect]
     Dosage: DAILY DOSE 12.6 MG
     Route: 062
     Dates: start: 20090306
  10. FENTANYL [Suspect]
     Indication: CANCER PAIN
     Dosage: UNK
     Route: 062
     Dates: start: 20081220
  11. ALOSENN [Concomitant]
     Indication: CONSTIPATION
     Dosage: UNK
     Route: 048
     Dates: start: 20080731
  12. DIOVAN [Concomitant]
     Dosage: 80 MG, QD
     Route: 048
  13. CALCIUM CARBONATE [Concomitant]
     Dosage: 500 MG, TID
     Route: 048
     Dates: start: 20080101
  14. RENAGEL [Concomitant]
     Dosage: 500 MG, TID
     Route: 048
     Dates: start: 20080101
  15. AMLODIPINE [Concomitant]
     Dosage: 5 MG, BID
     Route: 048
     Dates: start: 20080101
  16. NEXAVAR [Suspect]
     Dosage: 400 MG, BID
     Route: 048
     Dates: start: 20080610
  17. BETAMETHASONE [Concomitant]
     Dosage: DAILY DOSE 1 MG
     Route: 048
     Dates: start: 20090201
  18. PRIMPERAN TAB [Concomitant]
     Dosage: 5 MG, BID
     Route: 048
     Dates: start: 20071101
  19. MORPHINE [Suspect]
     Indication: CANCER PAIN
     Dosage: 5 MG, PRN
     Route: 048
     Dates: start: 20080311
  20. FENTANYL [Suspect]
     Dosage: DAILY DOSE 8.4 MG
     Route: 062
     Dates: start: 20090224
  21. KIDMIN [Concomitant]
     Indication: RENAL FAILURE
     Dosage: DAILY DOSE 200 ML
     Route: 041
     Dates: start: 20081206
  22. NEXAVAR [Suspect]
     Indication: RENAL CELL CARCINOMA
     Dosage: 400 MG, QD
     Route: 048
     Dates: start: 20080512, end: 20080609
  23. NEXAVAR [Suspect]
     Dosage: 400 MG, QD
     Route: 048
     Dates: start: 20090601, end: 20100301
  24. FENTANYL [Suspect]
     Dosage: DAILY DOSE 6.3 MG
     Route: 062
     Dates: start: 20090210
  25. FENTANYL [Suspect]
     Dosage: DAILY DOSE 33.6 MG
     Route: 062
     Dates: start: 20091006
  26. FENTANYL [Suspect]
     Dosage: DAILY DOSE 2.1 MG
     Route: 062
     Dates: start: 20081220
  27. PURSENNID [Concomitant]
     Dosage: 24 MG, QD
     Route: 048
     Dates: start: 20080101
  28. NEXAVAR [Suspect]
     Dosage: 400 MG, QD
     Route: 048
     Dates: start: 20080705, end: 20090301
  29. FENTANYL [Suspect]
     Dosage: DAILY DOSE 21 MG
     Route: 062
     Dates: start: 20090828
  30. METHYCOBAL [Concomitant]
     Dosage: 1.5 MG, QD
     Route: 048
     Dates: start: 20080912, end: 20081104
  31. OXYCONTIN [Suspect]
     Dosage: UNK
     Route: 048
     Dates: start: 20090312
  32. FENTANYL [Suspect]
     Dosage: DAILY DOSE 4.2 MG
     Route: 062
     Dates: start: 20080207
  33. FENTANYL [Suspect]
     Dosage: DAILY DOSE 16.8 MG
     Route: 062
     Dates: start: 20090307
  34. DECADRON [Concomitant]
     Dosage: DAILY DOSE 1 MG
     Route: 048
     Dates: start: 20080601, end: 20090201
  35. ASPIRIN [Concomitant]
     Dosage: 100 MG, QD
     Route: 048

REACTIONS (13)
  - PALMAR-PLANTAR ERYTHRODYSAESTHESIA SYNDROME [None]
  - PLATELET COUNT DECREASED [None]
  - HAEMORRHAGE [None]
  - BLOOD AMYLASE INCREASED [None]
  - SHOCK HAEMORRHAGIC [None]
  - MALAISE [None]
  - DECREASED APPETITE [None]
  - HYPERTENSION [None]
  - ALOPECIA [None]
  - OEDEMA [None]
  - DIARRHOEA [None]
  - NAUSEA [None]
  - PAIN [None]
